FAERS Safety Report 5275557-1 (Version None)
Quarter: 2007Q1

REPORT INFORMATION
  Report Type: 
  Country: None (occurrence: None)
  Receive Date: 20061213
  Receipt Date: 20040419
  Transmission Date: 20070707
  Serious: Yes (Hospitalization)
  Sender: FDA-Public Use
  Company Number: 2004UW07894

PATIENT
  Age: 42 Year

DRUGS (2)
  1. SEROQUEL [Suspect]
     Dosage: 300 MG  PO
     Route: 048
  2. LITHIUM CARBONATE [Suspect]
     Dosage: 900 MG

REACTIONS (3)
  - DEPRESSION [None]
  - HYPOMANIA [None]
  - TARDIVE DYSKINESIA [None]
